FAERS Safety Report 9974385 (Version 1)
Quarter: 2014Q1

REPORT INFORMATION
  Report Type: Spontaneous
  Country: US (occurrence: US)
  Receive Date: 20140306
  Receipt Date: 20140306
  Transmission Date: 20141002
  Serious: No
  Sender: FDA-Public Use
  Company Number: US-ABBVIE-13P-163-1156294-00

PATIENT
  Age: 58 Year
  Sex: Female
  Weight: 87.62 kg

DRUGS (4)
  1. HUMIRA [Suspect]
     Indication: RHEUMATOID ARTHRITIS
     Dates: end: 2011
  2. RITUXAN [Suspect]
     Indication: RHEUMATOID ARTHRITIS
     Dates: start: 2012, end: 20130826
  3. ZETIA [Concomitant]
     Indication: BLOOD CHOLESTEROL INCREASED
  4. EFFEXOR XR [Concomitant]
     Indication: DEPRESSION

REACTIONS (6)
  - Lymphadenopathy [Unknown]
  - Dysphonia [Unknown]
  - Aphonia [Unknown]
  - Cough [Unknown]
  - Dyspnoea [Unknown]
  - Urticaria [Unknown]
